FAERS Safety Report 11423661 (Version 1)
Quarter: 2015Q3

REPORT INFORMATION
  Report Type: Spontaneous
  Country: JP (occurrence: JP)
  Receive Date: 20150827
  Receipt Date: 20150827
  Transmission Date: 20151125
  Serious: Yes (Death)
  Sender: FDA-Public Use
  Company Number: JP-MALLINCKRODT-T201504074

PATIENT
  Age: 27 Year
  Sex: Female
  Weight: 47 kg

DRUGS (5)
  1. METHADONE [Suspect]
     Active Substance: METHADONE HYDROCHLORIDE
     Indication: CANCER PAIN
     Dosage: 15 MG (45 MG DAILY DOSE)
     Route: 048
     Dates: start: 20140812, end: 20140912
  2. OXYCODONE HYDROCHLORIDE. [Concomitant]
     Active Substance: OXYCODONE HYDROCHLORIDE
     Dosage: 480 MG
     Route: 058
     Dates: start: 20140820, end: 20140914
  3. LYRICA [Concomitant]
     Active Substance: PREGABALIN
     Dosage: 150 MG
     Route: 048
     Dates: start: 20140418, end: 20140912
  4. OXYCODONE HYDROCHLORIDE. [Concomitant]
     Active Substance: OXYCODONE HYDROCHLORIDE
     Dosage: 1200 MG
     Dates: start: 20140812, end: 20140820
  5. OXYCODONE HYDROCHLORIDE. [Concomitant]
     Active Substance: OXYCODONE HYDROCHLORIDE
     Dosage: 2880 MG
     Route: 058
     Dates: start: 20140521, end: 20140811

REACTIONS (1)
  - Rectal cancer [Fatal]

NARRATIVE: CASE EVENT DATE: 20140914
